FAERS Safety Report 18432745 (Version 1)
Quarter: 2020Q4

REPORT INFORMATION
  Report Type: Spontaneous
  Country: US (occurrence: US)
  Receive Date: 20201027
  Receipt Date: 20201027
  Transmission Date: 20210114
  Serious: Yes (Hospitalization, Disabling, Other)
  Sender: FDA-Public Use
  Company Number: US-PURDUE-USA-2020-0172442

PATIENT
  Sex: Male

DRUGS (3)
  1. OXYCONTIN [Suspect]
     Active Substance: OXYCODONE HYDROCHLORIDE
     Dosage: 40 MG, TID
     Route: 048
  2. OXYCONTIN [Suspect]
     Active Substance: OXYCODONE HYDROCHLORIDE
     Indication: PAIN
     Dosage: 5 MG, TID
     Route: 048
  3. PERCOCET [Suspect]
     Active Substance: ACETAMINOPHEN\OXYCODONE HYDROCHLORIDE
     Indication: PAIN
     Dosage: UNK, QID
     Route: 065
     Dates: start: 1990, end: 1998

REACTIONS (9)
  - Tendon operation [Unknown]
  - Drug dependence [Unknown]
  - Nasopharyngitis [Unknown]
  - Knee operation [Unknown]
  - Knee arthroplasty [Unknown]
  - Drug tolerance [Unknown]
  - Hyperhidrosis [Unknown]
  - Disability [Unknown]
  - Illness [Unknown]

NARRATIVE: CASE EVENT DATE: 2018
